FAERS Safety Report 5931408-0 (Version None)
Quarter: 2008Q4

REPORT INFORMATION
  Report Type: 
  Country: None (occurrence: None)
  Receive Date: 20081009
  Receipt Date: 20080630
  Transmission Date: 20090506
  Serious: Yes (Disabling)
  Sender: FDA-Public Use
  Company Number: PHEH2008US05145

PATIENT
  Age: 54 Year
  Sex: Female

DRUGS (5)
  1. ZOMETA [Suspect]
     Indication: BREAST CANCER
     Dosage: 4MG Q MONTH, INTRAVENOUS
     Route: 042
     Dates: start: 20010701, end: 20060301
  2. CYMBALTA [Concomitant]
  3. WELLBUTRIN [Concomitant]
  4. HYDROCODONE (HYDROCODONE) [Concomitant]
  5. SEROQUEL [Concomitant]

REACTIONS (2)
  - BONE DISORDER [None]
  - PAIN [None]
